FAERS Safety Report 6593889-1 (Version None)
Quarter: 2010Q1

REPORT INFORMATION
  Report Type: 
  Country: None (occurrence: None)
  Receive Date: 20100222
  Receipt Date: 20100211
  Transmission Date: 20100710
  Serious: Yes (Other)
  Sender: FDA-Public Use
  Company Number: US-PFIZER INC-2010019169

PATIENT
  Sex: Male

DRUGS (1)
  1. VIAGRA [Suspect]

REACTIONS (2)
  - CARDIOVASCULAR DISORDER [None]
  - ERECTION INCREASED [None]
